FAERS Safety Report 7203579-X (Version None)
Quarter: 2010Q4

REPORT INFORMATION
  Report Type: 
  Country: None (occurrence: None)
  Receive Date: 20101230
  Receipt Date: 20101221
  Transmission Date: 20110411
  Serious: Yes (Other)
  Sender: FDA-Public Use
  Company Number: JP-ASTRAZENECA-2010SE60802

PATIENT
  Age: 68 Year
  Sex: Male

DRUGS (2)
  1. AMIAS [Suspect]
     Indication: HYPERTENSION
     Dosage: OCCASIONALLY
     Route: 048
  2. MACRODANTIN [Suspect]
     Indication: URINARY TRACT INFECTION
     Route: 048
     Dates: end: 20100701

REACTIONS (1)
  - PERIPHERAL SENSORY NEUROPATHY [None]
